FAERS Safety Report 23650153 (Version 16)
Quarter: 2024Q3

REPORT INFORMATION
  Report Type: Spontaneous
  Country: GB (occurrence: GB)
  Receive Date: 20240319
  Receipt Date: 20240715
  Transmission Date: 20241017
  Serious: Yes (Other)
  Sender: JOHNSON AND JOHNSON
  Company Number: GB-SANDOZ-SDZ2023GB048792

PATIENT
  Sex: Male

DRUGS (39)
  1. STELARA [Suspect]
     Active Substance: USTEKINUMAB
     Indication: Psoriasis
     Dosage: UNK
     Route: 058
  2. STELARA [Suspect]
     Active Substance: USTEKINUMAB
     Indication: Psoriasis
     Route: 058
  3. STELARA [Suspect]
     Active Substance: USTEKINUMAB
     Route: 058
  4. STELARA [Suspect]
     Active Substance: USTEKINUMAB
     Route: 058
  5. STELARA [Suspect]
     Active Substance: USTEKINUMAB
     Route: 058
  6. STELARA [Suspect]
     Active Substance: USTEKINUMAB
     Route: 058
  7. STELARA [Suspect]
     Active Substance: USTEKINUMAB
     Route: 058
  8. STELARA [Suspect]
     Active Substance: USTEKINUMAB
     Route: 058
  9. STELARA [Suspect]
     Active Substance: USTEKINUMAB
     Route: 058
  10. STELARA [Suspect]
     Active Substance: USTEKINUMAB
     Route: 058
  11. ACITRETIN [Suspect]
     Active Substance: ACITRETIN
     Indication: Psoriasis
     Route: 065
  12. ACITRETIN [Suspect]
     Active Substance: ACITRETIN
     Route: 065
  13. ACITRETIN [Suspect]
     Active Substance: ACITRETIN
     Route: 065
  14. ACITRETIN [Suspect]
     Active Substance: ACITRETIN
     Route: 065
  15. ACITRETIN [Suspect]
     Active Substance: ACITRETIN
     Route: 065
  16. ACITRETIN [Suspect]
     Active Substance: ACITRETIN
     Route: 065
  17. ACITRETIN [Suspect]
     Active Substance: ACITRETIN
     Route: 065
  18. ACITRETIN [Suspect]
     Active Substance: ACITRETIN
     Route: 065
  19. ACITRETIN [Suspect]
     Active Substance: ACITRETIN
     Route: 065
  20. CYCLOSPORINE [Suspect]
     Active Substance: CYCLOSPORINE
     Indication: Psoriasis
     Dosage: UNK
     Route: 050
  21. CYCLOSPORINE [Suspect]
     Active Substance: CYCLOSPORINE
     Route: 065
  22. COCODAMOL [Suspect]
     Active Substance: ACETAMINOPHEN\CODEINE PHOSPHATE
     Indication: Product used for unknown indication
     Dosage: 6 DOSAGE FORM, QD
     Route: 065
  23. COCODAMOL [Suspect]
     Active Substance: ACETAMINOPHEN\CODEINE PHOSPHATE
     Dosage: 2 DOSAGE FORM, TID (30/500MG 2 TABLETS TDS) ;TIME INTERVAL:
     Route: 065
  24. COCODAMOL [Suspect]
     Active Substance: ACETAMINOPHEN\CODEINE PHOSPHATE
     Dosage: 6 DOSAGE FORM, QD
     Route: 065
  25. COSENTYX [Suspect]
     Active Substance: SECUKINUMAB
     Indication: Product used for unknown indication
     Dosage: 300 MG, QMO (MONTHLY)
     Route: 058
  26. BETAMETHASONE DIPROPIONATE\CALCIPOTRIENE MONOHYDRATE [Suspect]
     Active Substance: BETAMETHASONE DIPROPIONATE\CALCIPOTRIENE MONOHYDRATE
     Indication: Product used for unknown indication
     Dosage: RARELY, QV
     Route: 065
  27. BETAMETHASONE DIPROPIONATE\CALCIPOTRIENE MONOHYDRATE [Suspect]
     Active Substance: BETAMETHASONE DIPROPIONATE\CALCIPOTRIENE MONOHYDRATE
     Dosage: RARELY, QV
     Route: 065
  28. BETAMETHASONE DIPROPIONATE\CALCIPOTRIENE MONOHYDRATE [Suspect]
     Active Substance: BETAMETHASONE DIPROPIONATE\CALCIPOTRIENE MONOHYDRATE
     Dosage: RARELY, QV
     Route: 065
  29. HYDROXYUREA [Suspect]
     Active Substance: HYDROXYUREA
     Indication: Psoriasis
     Route: 065
  30. HYDROXYUREA [Suspect]
     Active Substance: HYDROXYUREA
     Route: 065
  31. HUMIRA [Suspect]
     Active Substance: ADALIMUMAB
     Indication: Psoriasis
     Route: 050
  32. HUMIRA [Suspect]
     Active Substance: ADALIMUMAB
     Route: 065
  33. METHOTREXATE [Suspect]
     Active Substance: METHOTREXATE
     Indication: Psoriasis
     Route: 050
  34. ACETAMINOPHEN\CODEINE PHOSPHATE [Suspect]
     Active Substance: ACETAMINOPHEN\CODEINE PHOSPHATE
     Indication: Product used for unknown indication
     Dosage: 2 DOSAGE FORM, TID (30/500MG 2 TABLETS TDS)?6 DOSAGE FORM, QD
     Route: 048
  35. ACETAMINOPHEN\CODEINE PHOSPHATE [Suspect]
     Active Substance: ACETAMINOPHEN\CODEINE PHOSPHATE
     Dosage: 6 DOSAGE FORM, ONCE DAILY (QD)
     Route: 048
  36. SECUKINUMAB [Suspect]
     Active Substance: SECUKINUMAB
     Indication: Product used for unknown indication
     Dosage: 300 MILLIGRAM (300 MG MONTHLY)
     Route: 065
  37. COSENTYX [Suspect]
     Active Substance: SECUKINUMAB
     Indication: Product used for unknown indication
     Route: 058
  38. BETAMETHASONE DIPROPIONATE\CALCIPOTRIENE MONOHYDRATE [Suspect]
     Active Substance: BETAMETHASONE DIPROPIONATE\CALCIPOTRIENE MONOHYDRATE
     Indication: Product used for unknown indication
     Dosage: UNK (RARELY, QV); ;; ;
     Route: 048
  39. DAIVOBET [Suspect]
     Active Substance: BETAMETHASONE DIPROPIONATE\CALCIPOTRIENE
     Indication: Product used for unknown indication
     Route: 003

REACTIONS (18)
  - Skin hyperpigmentation [Unknown]
  - Chest pain [Unknown]
  - Pruritus [Unknown]
  - Therapeutic product effect incomplete [Unknown]
  - Hypertension [Unknown]
  - Rash [Unknown]
  - Wheezing [Unknown]
  - Drug ineffective [Unknown]
  - Burning sensation [Unknown]
  - Chest pain [Unknown]
  - Hypertension [Unknown]
  - Wheezing [Unknown]
  - Pruritus [Unknown]
  - Therapeutic product effect incomplete [Unknown]
  - Burning sensation [Unknown]
  - Rash [Unknown]
  - Skin hyperpigmentation [Unknown]
  - Rash pruritic [Unknown]
